FAERS Safety Report 13107718 (Version 2)
Quarter: 2017Q1

REPORT INFORMATION
  Report Type: Spontaneous
  Country: US (occurrence: US)
  Receive Date: 20170112
  Receipt Date: 20170216
  Transmission Date: 20170428
  Serious: No
  Sender: FDA-Public Use
  Company Number: US-TEVA-726670ACC

PATIENT
  Sex: Female

DRUGS (6)
  1. DETROL LA [Concomitant]
     Active Substance: TOLTERODINE TARTRATE
  2. ACTONEL [Concomitant]
     Active Substance: RISEDRONATE SODIUM
  3. ATENOLOL. [Concomitant]
     Active Substance: ATENOLOL
  4. CALCIUM [Concomitant]
     Active Substance: CALCIUM
  5. COPAXONE [Suspect]
     Active Substance: GLATIRAMER ACETATE
     Indication: MULTIPLE SCLEROSIS
     Route: 058
     Dates: start: 20100216
  6. MODAFINIL. [Concomitant]
     Active Substance: MODAFINIL

REACTIONS (1)
  - Injection site reaction [Unknown]
